FAERS Safety Report 4280866-9 (Version None)
Quarter: 2004Q1

REPORT INFORMATION
  Report Type: 
  Country: None (occurrence: None)
  Receive Date: 20040127
  Receipt Date: 20040115
  Transmission Date: 20041129
  Serious: Yes (Other)
  Sender: FDA-Public Use
  Company Number: HQWYE384315JAN04

PATIENT
  Age: 79 Year
  Sex: Male

DRUGS (3)
  1. CORDARONE [Suspect]
     Dosage: ORAL
     Route: 048
     Dates: end: 20031101
  2. ENALAPRIL MALEATE [Concomitant]
  3. SINTROM [Concomitant]

REACTIONS (2)
  - BLOOD CREATINE PHOSPHOKINASE INCREASED [None]
  - MYALGIA [None]
